FAERS Safety Report 9725292 (Version 1)
Quarter: 2013Q4

REPORT INFORMATION
  Report Type: Spontaneous
  Country: US (occurrence: None)
  Receive Date: 20131202
  Receipt Date: 20131202
  Transmission Date: 20140711
  Serious: No
  Sender: FDA-Public Use
  Company Number: None

PATIENT
  Age: 29 Year
  Sex: 0
  Weight: 72.58 kg

DRUGS (1)
  1. MIRENA [Suspect]
     Dates: start: 20111214, end: 20111220

REACTIONS (4)
  - Pharyngitis streptococcal [None]
  - Infectious mononucleosis [None]
  - Sinusitis [None]
  - Gastroenteritis viral [None]
